FAERS Safety Report 15121292 (Version 2)
Quarter: 2018Q3

REPORT INFORMATION
  Report Type: Spontaneous
  Country: AT (occurrence: AT)
  Receive Date: 20180709
  Receipt Date: 20180821
  Transmission Date: 20181010
  Serious: Yes (Death, Hospitalization, Other)
  Sender: FDA-Public Use
  Company Number: AT-AMGEN-AUTSP2018092140

PATIENT
  Age: 70 Year
  Sex: Male
  Weight: 85 kg

DRUGS (5)
  1. MIMPARA [Suspect]
     Active Substance: CINACALCET HYDROCHLORIDE
     Indication: PRODUCT USED FOR UNKNOWN INDICATION
     Dosage: UNK
     Route: 065
  2. PARSABIV [Suspect]
     Active Substance: ETELCALCETIDE HYDROCHLORIDE
     Indication: HYPERPARATHYROIDISM SECONDARY
     Dosage: 5 MG, 3 TIMES/WK
     Route: 042
     Dates: start: 20180215, end: 20180426
  3. ALLOPURINOL. [Concomitant]
     Active Substance: ALLOPURINOL
     Indication: GOUT
     Dosage: 150 MG, QD
     Dates: start: 20160114, end: 20180427
  4. NOMEXOR [Concomitant]
     Active Substance: NEBIVOLOL HYDROCHLORIDE
     Indication: CORONARY ARTERY DISEASE
     Dosage: 2.5 MG, QD
     Dates: start: 20180421, end: 20180427
  5. CLOPIDOGREL [Concomitant]
     Active Substance: CLOPIDOGREL BISULFATE
     Indication: CORONARY ARTERY DISEASE
     Dosage: 75 MG, QD
     Dates: start: 20141221, end: 20180501

REACTIONS (6)
  - Dyspnoea [Recovering/Resolving]
  - Hypotension [Recovering/Resolving]
  - Decreased appetite [Recovering/Resolving]
  - Nausea [Unknown]
  - Vomiting [Unknown]
  - Acute myocardial infarction [Fatal]

NARRATIVE: CASE EVENT DATE: 20180422
